FAERS Safety Report 5748886-2 (Version None)
Quarter: 2008Q2

REPORT INFORMATION
  Report Type: 
  Country: None (occurrence: None)
  Receive Date: 20080522
  Receipt Date: 20080505
  Transmission Date: 20081010
  Serious: Yes (Death)
  Sender: FDA-Public Use
  Company Number: 08-194

PATIENT
  Sex: Male

DRUGS (26)
  1. FAZACLO ODT [Suspect]
     Indication: SCHIZOPHRENIA
     Dosage: 600 MG DAILY PO
     Route: 048
     Dates: start: 20010708, end: 20080415
  2. ADVAIR DISKUS 100/50 [Concomitant]
  3. SPIRIVA [Concomitant]
  4. TRICOR [Concomitant]
  5. EFFEXOR [Concomitant]
  6. ALBUTEROL [Concomitant]
  7. ALBUTEROL [Concomitant]
  8. AMLODIPINE [Concomitant]
  9. DEPAKOTE [Concomitant]
  10. FLOVENT [Concomitant]
  11. FUROSEMIDE [Concomitant]
  12. METFORMIN HCL [Concomitant]
  13. METOPROLOL TARTRATE [Concomitant]
  14. RISPERDAL [Concomitant]
  15. OMEPRAZOLE [Concomitant]
  16. LORAZEPAM [Concomitant]
  17. OXYCODONE HCL [Concomitant]
  18. LACTULOSE [Concomitant]
  19. SENNA S [Concomitant]
  20. FORADIL [Concomitant]
  21. ZINC OXIDE [Concomitant]
  22. ANTACID TAB [Concomitant]
  23. DUONEB [Concomitant]
  24. TYLENOL [Concomitant]
  25. TUSSIN DM [Concomitant]
  26. CEPACOL LOZENGE [Concomitant]

REACTIONS (1)
  - DEATH [None]
